FAERS Safety Report 20317614 (Version 1)
Quarter: 2022Q1

REPORT INFORMATION
  Report Type: Spontaneous
  Country: IR (occurrence: IR)
  Receive Date: 20220110
  Receipt Date: 20220110
  Transmission Date: 20220423
  Serious: Yes (Death, Hospitalization)
  Sender: FDA-Public Use
  Company Number: IR-MYLANLABS-2022M1001993

PATIENT
  Age: 7 Year
  Sex: Female

DRUGS (8)
  1. ETOPOSIDE [Suspect]
     Active Substance: ETOPOSIDE
     Indication: Acute myeloid leukaemia
     Dosage: UNK
     Route: 065
     Dates: start: 202010
  2. CYTARABINE [Suspect]
     Active Substance: CYTARABINE
     Indication: Acute myeloid leukaemia
     Dosage: 300 MILLIGRAM/SQ. METER,AS LOADING DOSE ON DAY 1 AND 2
     Route: 065
     Dates: start: 20201007
  3. CYTARABINE [Suspect]
     Active Substance: CYTARABINE
     Dosage: 150 MILLIGRAM/SQ. METER,FROM DAY 3
     Route: 065
  4. IDARUBICIN [Suspect]
     Active Substance: IDARUBICIN
     Indication: Acute myeloid leukaemia
     Dosage: 0.5 MILLIGRAM/KILOGRAM, ON DAY 3, 5 AND 7
     Route: 065
     Dates: start: 202010
  5. DEXAMETHASONE [Suspect]
     Active Substance: DEXAMETHASONE
     Indication: Acute myeloid leukaemia
     Dosage: 1.5 MILLIGRAM, Q8H
     Route: 065
     Dates: start: 202010
  6. AMPHOTERICIN B [Suspect]
     Active Substance: AMPHOTERICIN B
     Indication: Prophylaxis
     Dosage: 2.5 MILLIGRAM/KILOGRAM, EVERY OTHER DAY
     Route: 065
     Dates: start: 202010
  7. AMPHOTERICIN B [Suspect]
     Active Substance: AMPHOTERICIN B
     Dosage: 5 MILLIGRAM/KILOGRAM, QD
     Route: 065
     Dates: start: 2020
  8. SULFAMETHOXAZOLE\TRIMETHOPRIM [Concomitant]
     Active Substance: SULFAMETHOXAZOLE\TRIMETHOPRIM
     Indication: Prophylaxis
     Dosage: 2.5 MILLIGRAM/KILOGRAM,TWICE DAILY FOR 3 TIMES EVERY WEEK
     Route: 065

REACTIONS (4)
  - Mucormycosis [Fatal]
  - Neutropenic colitis [Fatal]
  - Disseminated intravascular coagulation [Fatal]
  - Multiple organ dysfunction syndrome [Fatal]

NARRATIVE: CASE EVENT DATE: 20200101
